FAERS Safety Report 8116828-0 (Version None)
Quarter: 2012Q1

REPORT INFORMATION
  Report Type: 
  Country: None (occurrence: None)
  Receive Date: 20120206
  Receipt Date: 20120131
  Transmission Date: 20120608
  Serious: Yes (Disabling, Other)
  Sender: FDA-Public Use
  Company Number: CHPA2012NZ002327

PATIENT
  Sex: Female

DRUGS (1)
  1. SCOPOLAMINE [Suspect]
     Indication: VERTIGO
     Dosage: 1 DF, Q72H
     Route: 062
     Dates: start: 20111101, end: 20111201

REACTIONS (6)
  - VOCAL CORD DISORDER [None]
  - OEDEMA MOUTH [None]
  - OFF LABEL USE [None]
  - DYSPHAGIA [None]
  - PHARYNGEAL OEDEMA [None]
  - DYSGEUSIA [None]
